FAERS Safety Report 5663990-5 (Version None)
Quarter: 2008Q1

REPORT INFORMATION
  Report Type: 
  Country: None (occurrence: None)
  Receive Date: 20080314
  Receipt Date: 20080306
  Transmission Date: 20080703
  Serious: Yes (Hospitalization)
  Sender: FDA-Public Use
  Company Number: US-ASTRAZENECA-2008UW04478

PATIENT
  Age: 49 Year
  Sex: Female

DRUGS (3)
  1. SEROQUEL XR [Suspect]
     Dosage: 6900-12000 MG
     Route: 048
  2. ALCOHOL [Suspect]
  3. THC [Suspect]

REACTIONS (1)
  - INTENTIONAL OVERDOSE [None]
